FAERS Safety Report 4743561-5 (Version None)
Quarter: 2005Q3

REPORT INFORMATION
  Report Type: 
  Country: None (occurrence: None)
  Receive Date: 20050809
  Receipt Date: 20050727
  Transmission Date: 20060218
  Serious: Yes (Hospitalization, Disabling, Other)
  Sender: FDA-Public Use
  Company Number: 2005089670

PATIENT
  Age: 11 Year
  Sex: Female

DRUGS (5)
  1. GENOTROPIN [Suspect]
     Indication: HYPOPITUITARISM
     Dosage: 1 MG (1 MG, 1 IN 1 D)
     Dates: start: 20040428
  2. DESMOPRESSIN ACETATE (DESMOPRESSIN ACETATE) [Concomitant]
  3. THYROXINE (LEVOTHYROXINE) [Concomitant]
  4. WARFARIN (WARFARIN) [Concomitant]
  5. HYDROCORTISONE [Concomitant]

REACTIONS (1)
  - DIABETES MELLITUS [None]
